FAERS Safety Report 5163786-7 (Version None)
Quarter: 2006Q4

REPORT INFORMATION
  Report Type: 
  Country: None (occurrence: None)
  Receive Date: 20061124
  Receipt Date: 20061111
  Transmission Date: 20070319
  Serious: Yes (Other)
  Sender: FDA-Public Use
  Company Number: 2006142644

PATIENT

DRUGS (1)
  1. LYRICA [Suspect]
     Dosage: 150 MG (50 MG)(3 IN 1 D)

REACTIONS (3)
  - CONFUSIONAL STATE [None]
  - ILL-DEFINED DISORDER [None]
  - LETHARGY [None]
